FAERS Safety Report 4482067-8 (Version None)
Quarter: 2004Q4

REPORT INFORMATION
  Report Type: 
  Country: None (occurrence: None)
  Receive Date: 20041020
  Receipt Date: 20041006
  Transmission Date: 20050328
  Serious: Yes (Death, Hospitalization)
  Sender: FDA-Public Use
  Company Number: FR_041004949

PATIENT
  Age: 56 Year
  Sex: Female

DRUGS (3)
  1. GEMZAR [Suspect]
     Indication: ADENOCARCINOMA
     Route: 042
     Dates: start: 20031014
  2. GEMZAR [Suspect]
     Indication: METASTATIC NEOPLASM
     Route: 042
     Dates: start: 20031014
  3. CISPLATIN [Concomitant]

REACTIONS (7)
  - ACUTE RESPIRATORY FAILURE [None]
  - BRONCHOPNEUMONIA [None]
  - FEBRILE NEUTROPENIA [None]
  - FUNGAL INFECTION [None]
  - HYPOXIA [None]
  - LYMPHANGITIS [None]
  - PANCYTOPENIA [None]
